FAERS Safety Report 5576446-5 (Version None)
Quarter: 2007Q4

REPORT INFORMATION
  Report Type: 
  Country: None (occurrence: None)
  Receive Date: 20071228
  Receipt Date: 20071221
  Transmission Date: 20080405
  Serious: Yes (Hospitalization)
  Sender: FDA-Public Use
  Company Number: CA-ASTRAZENECA-2007UW27147

PATIENT
  Age: 81 Year
  Sex: Male

DRUGS (6)
  1. CRESTOR [Suspect]
     Route: 048
     Dates: start: 20071001
  2. CELEBREX [Concomitant]
     Route: 048
  3. NORVASC [Concomitant]
     Route: 048
  4. DEXAMETHASONE TAB [Concomitant]
     Route: 048
  5. DRUG FOR LOW PLATELETS [Concomitant]
     Indication: PLATELET COUNT DECREASED
     Dates: end: 20071101
  6. LIPITOR [Concomitant]

REACTIONS (3)
  - IDIOPATHIC THROMBOCYTOPENIC PURPURA [None]
  - RHABDOMYOLYSIS [None]
  - SEPSIS [None]
